FAERS Safety Report 9840508 (Version 1)
Quarter: 2013Q4

REPORT INFORMATION
  Report Type: Spontaneous
  Country: US (occurrence: None)
  Receive Date: 20131211
  Receipt Date: 20131211
  Transmission Date: 20140711
  Serious: No
  Sender: FDA-Public Use
  Company Number: ALL1-2011-04080

PATIENT
  Age: 43 Year
  Sex: Female

DRUGS (1)
  1. FIRAZYR [Suspect]
     Dosage: 30 MG, UNKNOWN, SUBCUTANEOUS
     Route: 058
     Dates: start: 20111020

REACTIONS (3)
  - Fatigue [None]
  - Urticaria [None]
  - Rash [None]
